FAERS Safety Report 24992904 (Version 1)
Quarter: 2025Q1

REPORT INFORMATION
  Report Type: Spontaneous
  Country: US (occurrence: US)
  Receive Date: 20250221
  Receipt Date: 20250221
  Transmission Date: 20250409
  Serious: Yes (Death, Other)
  Sender: HIKMA
  Company Number: US-HIKMA PHARMACEUTICALS USA INC.-US-H14001-25-01442

PATIENT
  Sex: Female
  Weight: 54 kg

DRUGS (2)
  1. DIGOXIN [Suspect]
     Active Substance: DIGOXIN
     Indication: Product used for unknown indication
     Route: 065
  2. ACETAMINOPHEN AND CODEINE [Concomitant]
     Active Substance: ACETAMINOPHEN\CODEINE PHOSPHATE
     Indication: Product used for unknown indication
     Route: 065

REACTIONS (8)
  - Electrocardiogram ST segment depression [Fatal]
  - Overdose [Fatal]
  - Atrioventricular block first degree [Fatal]
  - Tachycardia [Fatal]
  - Ventricular fibrillation [Fatal]
  - Blood potassium decreased [Fatal]
  - Toxicity to various agents [Fatal]
  - Cardiac arrest [Fatal]
